FAERS Safety Report 17709596 (Version 1)
Quarter: 2020Q2

REPORT INFORMATION
  Report Type: Report from Study
  Country: None (occurrence: MX)
  Receive Date: 20200427
  Receipt Date: 20200427
  Transmission Date: 20200714
  Serious: Yes (Hospitalization, Disabling)
  Sender: FDA-Public Use
  Company Number: MX-ABBVIE-20K-107-3377903-00

PATIENT
  Age: 57 Year
  Sex: Male
  Weight: 72.48 kg

DRUGS (1)
  1. HUMIRA [Suspect]
     Active Substance: ADALIMUMAB
     Indication: RHEUMATOID ARTHRITIS
     Route: 058
     Dates: start: 201908, end: 201909

REACTIONS (8)
  - Cartilage injury [Unknown]
  - Thoracic vertebral fracture [Recovering/Resolving]
  - Pain in extremity [Unknown]
  - Nervous system disorder [Unknown]
  - Ulcer [Recovered/Resolved]
  - Joint dislocation [Unknown]
  - Paralysis [Recovering/Resolving]
  - Ulcer [Recovering/Resolving]

NARRATIVE: CASE EVENT DATE: 201909
